FAERS Safety Report 9303886 (Version 1)
Quarter: 2013Q1

REPORT INFORMATION
  Report Type: Spontaneous
  Country: US (occurrence: None)
  Receive Date: 20130129
  Receipt Date: 20130129
  Transmission Date: 20140127
  Serious: Yes (Hospitalization)
  Sender: FDA-Public Use
  Company Number: 2012273904

PATIENT
  Age: 54 Year
  Sex: Female
  Weight: 80.5 kg

DRUGS (8)
  1. RITUXIMAB [Suspect]
     Indication: RHEUMATOID ARTHRITIS
     Dates: start: 20120329, end: 20121129
  2. PREDNISONE [Suspect]
     Indication: RHEUMATOID ARTHRITIS
     Route: 048
     Dates: start: 20120428
  3. METHOTREXATE (METHOTREXATE) [Concomitant]
  4. FOLIC ACID (FOLIC ACID) [Concomitant]
  5. DEXILANT (DEXLANSOPRAZOLE) [Concomitant]
  6. (LORATADINE (LORATADINE) [Concomitant]
  7. MULTIVITAMINS W/MINERALS (MINERALS NOS, VITAMINS NOS) [Concomitant]
  8. LEVOTHYROXINE (LEVOTHYROXINE) [Concomitant]

REACTIONS (2)
  - Arthritis bacterial [None]
  - Streptococcus test positive [None]
